FAERS Safety Report 4650764-7 (Version None)
Quarter: 2005Q2

REPORT INFORMATION
  Report Type: 
  Country: None (occurrence: None)
  Receive Date: 20050503
  Receipt Date: 20050425
  Transmission Date: 20051028
  Serious: Yes (Hospitalization, Disabling)
  Sender: FDA-Public Use
  Company Number: 200513783GDDC

PATIENT
  Age: 69 Year
  Sex: Male
  Weight: 80 kg

DRUGS (4)
  1. LANTUS [Suspect]
     Dosage: DOSE: VARIABLE; DOSE UNIT: UNITS
     Route: 058
     Dates: start: 20040728, end: 20050325
  2. PERINDOPRIL [Concomitant]
  3. SIMVASTATIN [Concomitant]
  4. NOVORAPID [Concomitant]
     Dosage: DOSE: VARIABLE; DOSE UNIT: UNITS

REACTIONS (3)
  - ASTHENIA [None]
  - HYPOAESTHESIA ORAL [None]
  - SWELLING [None]
